FAERS Safety Report 11990515 (Version 3)
Quarter: 2016Q1

REPORT INFORMATION
  Report Type: Spontaneous
  Country: US (occurrence: US)
  Receive Date: 20160202
  Receipt Date: 20160225
  Transmission Date: 20160526
  Serious: Yes (Hospitalization)
  Sender: FDA-Public Use
  Company Number: US-VERTEX PHARMACEUTICALS-2016-000511

PATIENT
  Age: 19 Year
  Sex: Male

DRUGS (8)
  1. ORKAMBI [Suspect]
     Active Substance: IVACAFTOR\LUMACAFTOR
     Indication: CYSTIC FIBROSIS
     Dosage: 400-250MG, BID
     Route: 048
     Dates: start: 20160127
  2. AQUADEKS [Concomitant]
  3. SCANDISHAKE [Concomitant]
     Active Substance: DIETARY SUPPLEMENT
  4. TOBI [Suspect]
     Active Substance: TOBRAMYCIN
     Indication: CYSTIC FIBROSIS
     Dosage: 112 MG, BID
     Route: 055
     Dates: start: 20150609
  5. XOPENEX [Concomitant]
     Active Substance: LEVALBUTEROL HYDROCHLORIDE
  6. SODIUM CHLORIDE. [Concomitant]
     Active Substance: SODIUM CHLORIDE
  7. ORKAMBI [Suspect]
     Active Substance: IVACAFTOR\LUMACAFTOR
     Dosage: REDUCED DOSE
     Route: 048
     Dates: start: 20160208
  8. PULMOZYME [Concomitant]
     Active Substance: DORNASE ALFA

REACTIONS (3)
  - Nausea [Recovered/Resolved]
  - Chest discomfort [Recovered/Resolved]
  - Lung infection [Unknown]

NARRATIVE: CASE EVENT DATE: 20160129
